FAERS Safety Report 6602129-6 (Version None)
Quarter: 2010Q1

REPORT INFORMATION
  Report Type: 
  Country: None (occurrence: None)
  Receive Date: 20100225
  Receipt Date: 20100218
  Transmission Date: 20100710
  Serious: Yes (Hospitalization)
  Sender: FDA-Public Use
  Company Number: PHHO2009DE13133

PATIENT
  Sex: Male
  Weight: 87 kg

DRUGS (1)
  1. CERTICAN [Suspect]
     Indication: HEART TRANSPLANT
     Dosage: OPEN LABEL
     Route: 048
     Dates: start: 20090501

REACTIONS (1)
  - HEART TRANSPLANT REJECTION [None]
